FAERS Safety Report 8887058 (Version 1)
Quarter: 2012Q4

REPORT INFORMATION
  Report Type: 
  Country: NZ (occurrence: NZ)
  Receive Date: 20121105
  Receipt Date: 20121105
  Transmission Date: 20130627
  Serious: Yes (Life-Threatening, Hospitalization, Other)
  Sender: FDA-Public Use
  Company Number: NZ-ASTRAZENECA-2012SE82754

PATIENT
  Age: 68 Year
  Sex: Male

DRUGS (8)
  1. BRILINTA [Suspect]
     Indication: ACUTE CORONARY SYNDROME
     Route: 048
     Dates: start: 20120923, end: 20120925
  2. LAXSOL [Concomitant]
     Indication: CONSTIPATION
     Route: 048
     Dates: start: 20120922, end: 20120927
  3. LACTULOSE [Concomitant]
     Indication: CONSTIPATION
     Route: 048
     Dates: start: 20120922, end: 20120928
  4. METOPROLOL CR [Concomitant]
     Indication: ANGINA PECTORIS
     Route: 048
     Dates: end: 20120926
  5. ASPIRIN EC [Concomitant]
     Indication: ANGINA PECTORIS
     Route: 048
  6. SIMVASTATIN [Concomitant]
     Indication: BLOOD CHOLESTEROL ABNORMAL
     Route: 048
  7. DOXAZOSIN [Concomitant]
     Indication: HYPERTENSION
     Route: 048
     Dates: end: 20120925
  8. PANTOPRAZOLE [Concomitant]
     Indication: CHRONIC OBSTRUCTIVE PULMONARY DISEASE
     Route: 048

REACTIONS (2)
  - Torsade de pointes [Recovered/Resolved]
  - Ventricular fibrillation [Recovered/Resolved]
